FAERS Safety Report 6621882-9 (Version None)
Quarter: 2010Q1

REPORT INFORMATION
  Report Type: 
  Country: None (occurrence: None)
  Receive Date: 20100304
  Receipt Date: 20100301
  Transmission Date: 20100710
  Serious: Yes (Death)
  Sender: FDA-Public Use
  Company Number: 2010EU000793

PATIENT
  Age: 39 Year
  Sex: Male

DRUGS (5)
  1. PROGRAF [Suspect]
     Indication: RENAL TRANSPLANT
     Dosage: 8 MG, BID, ORAL
     Route: 048
     Dates: start: 20090529, end: 20090618
  2. ABACAVIR [Suspect]
     Dosage: 600 MG, /D, ORAL
     Route: 048
     Dates: end: 20090616
  3. LAMIVUDINE [Suspect]
     Dosage: 150 MG, /D, ORAL
     Route: 048
     Dates: end: 20090616
  4. NEVIRAPINE [Suspect]
     Dosage: 400 MG, /D, ORAL
     Route: 048
     Dates: end: 20090616
  5. TERBINAFINE HCL [Concomitant]

REACTIONS (3)
  - HEPATIC STEATOSIS [None]
  - LACTIC ACIDOSIS [None]
  - LIVER INJURY [None]
